FAERS Safety Report 20657209 (Version 1)
Quarter: 2022Q1

REPORT INFORMATION
  Report Type: Report from Study
  Country: CA (occurrence: None)
  Receive Date: 20220331
  Receipt Date: 20220331
  Transmission Date: 20220423
  Serious: Yes (Hospitalization)
  Sender: FDA-Public Use
  Company Number: CA-ROCHE-3057726

PATIENT
  Age: 73 Year
  Sex: Male
  Weight: 83.3 kg

DRUGS (16)
  1. MOSUNETUZUMAB [Suspect]
     Active Substance: MOSUNETUZUMAB
     Indication: B-cell lymphoma
     Dosage: DOSE LAST STUDY DRUG ADMIN PRIOR SAE IS 30 MG ON 27/JAN/2022
     Route: 042
     Dates: start: 20211025
  2. POLATUZUMAB VEDOTIN [Suspect]
     Active Substance: POLATUZUMAB VEDOTIN
     Indication: B-cell lymphoma
     Dosage: DOSE LAST STUDY DRUG ADMIN PRIOR SAE IS 140 MG WAS ON 27/JAN/2022
     Route: 042
     Dates: start: 20211025
  3. RABEPRAZOLE [Concomitant]
     Active Substance: RABEPRAZOLE
     Dosage: QD
     Route: 048
     Dates: start: 2010
  4. CALCIUM [Concomitant]
     Active Substance: CALCIUM
     Dosage: QD
     Route: 048
     Dates: start: 202103
  5. LORATADINE [Concomitant]
     Active Substance: LORATADINE
     Dosage: PRN
     Route: 048
     Dates: start: 201604
  6. MAGNESIUM OXIDE [Concomitant]
     Active Substance: MAGNESIUM OXIDE
     Dosage: TID
     Route: 048
     Dates: start: 202104
  7. HERBALS\SENNOSIDES [Concomitant]
     Active Substance: HERBALS\SENNOSIDES
     Dosage: 2 TABLET PRN
     Route: 048
     Dates: start: 2021
  8. BENADRYL [Concomitant]
     Active Substance: DIPHENHYDRAMINE HYDROCHLORIDE
     Dosage: PRN
     Route: 048
     Dates: start: 20211021
  9. ALLOPURINOL [Concomitant]
     Active Substance: ALLOPURINOL
     Dosage: QD
     Route: 048
     Dates: start: 20211022
  10. VALACYCLOVIR HYDROCHLORIDE [Concomitant]
     Active Substance: VALACYCLOVIR HYDROCHLORIDE
     Dosage: BID
     Route: 048
     Dates: start: 20211025
  11. METOPROLOL [Concomitant]
     Active Substance: METOPROLOL
     Dosage: BID
     Route: 048
     Dates: start: 20220105
  12. FLOVENT [Concomitant]
     Active Substance: FLUTICASONE PROPIONATE
     Dosage: 2 INHALATION BID
     Route: 055
     Dates: start: 20220126
  13. NYSTATIN [Concomitant]
     Active Substance: NYSTATIN
     Dosage: QID
     Route: 048
     Dates: start: 20220218
  14. MOXIFLOXACIN [Concomitant]
     Active Substance: MOXIFLOXACIN
     Dosage: QD
     Route: 048
     Dates: start: 20220216, end: 20220221
  15. AMOXICILLIN\CLAVULANIC ACID [Concomitant]
     Active Substance: AMOXICILLIN\CLAVULANIC ACID
     Dosage: BID
     Route: 048
     Dates: start: 20220304, end: 20220308
  16. CIPROFLOXACIN [Concomitant]
     Active Substance: CIPROFLOXACIN
     Dosage: BID
     Route: 048
     Dates: start: 20220309

REACTIONS (1)
  - Intestinal obstruction [Not Recovered/Not Resolved]

NARRATIVE: CASE EVENT DATE: 20220319
